FAERS Safety Report 9562313 (Version 1)
Quarter: 2013Q3

REPORT INFORMATION
  Report Type: Spontaneous
  Country: US (occurrence: US)
  Receive Date: 20130927
  Receipt Date: 20130927
  Transmission Date: 20140515
  Serious: Yes (Hospitalization)
  Sender: FDA-Public Use
  Company Number: US-ASTRAZENECA-2013SE70566

PATIENT
  Age: 61 Year
  Sex: Male

DRUGS (2)
  1. BRILINTA [Suspect]
     Indication: ACUTE CORONARY SYNDROME
     Dosage: LOADED WITH 180MG OF BRILINTA AND MAINTENANCE THERAPY STARTED ABOUT 9 HOURS LATER
     Route: 048
  2. PRASUGREL [Concomitant]

REACTIONS (1)
  - Thrombosis in device [Recovered/Resolved]
